FAERS Safety Report 14968848 (Version 1)
Quarter: 2018Q2

REPORT INFORMATION
  Report Type: Report from Study
  Country: US (occurrence: US)
  Receive Date: 20180604
  Receipt Date: 20180604
  Transmission Date: 20180711
  Serious: Yes (Other)
  Sender: FDA-Public Use
  Company Number: US-KYOWAKIRIN-2018BKK001378

PATIENT

DRUGS (2)
  1. GRANISETRON [Suspect]
     Active Substance: GRANISETRON
     Indication: NAUSEA
     Dosage: ONE PATCH EVERY 7 DAYS TO UPPER ARM, ALTERNATE SIDES
     Route: 061
     Dates: start: 201710, end: 20180524
  2. GRANISETRON [Suspect]
     Active Substance: GRANISETRON
     Indication: VOMITING

REACTIONS (6)
  - Blood pressure increased [Unknown]
  - Product administered at inappropriate site [Recovered/Resolved]
  - Hyperhidrosis [Unknown]
  - Hot flush [Unknown]
  - Product adhesion issue [Unknown]
  - Product use in unapproved indication [Recovered/Resolved]

NARRATIVE: CASE EVENT DATE: 201710
